FAERS Safety Report 25299946 (Version 1)
Quarter: 2025Q2

REPORT INFORMATION
  Report Type: Spontaneous
  Country: US (occurrence: US)
  Receive Date: 20250512
  Receipt Date: 20250512
  Transmission Date: 20250717
  Serious: Yes (Other)
  Sender: BAYER HEALTHCARE LLC
  Company Number: US-BAYER-2025A060670

PATIENT
  Age: 88 Year
  Sex: Male

DRUGS (1)
  1. BAYER ASPIRIN EXTRA STRENGTH CAPLETS [Suspect]
     Active Substance: ASPIRIN
     Indication: Pain
     Dosage: 1 DF, QID
     Route: 048

REACTIONS (3)
  - Haematochezia [Not Recovered/Not Resolved]
  - Faeces discoloured [Not Recovered/Not Resolved]
  - Incorrect dose administered [None]
